FAERS Safety Report 5730350-8 (Version None)
Quarter: 2008Q2

REPORT INFORMATION
  Report Type: 
  Country: None (occurrence: None)
  Receive Date: 20080430
  Receipt Date: 20071221
  Transmission Date: 20081010
  Serious: No
  Sender: FDA-Public Use
  Company Number: 2007-US-000281

PATIENT
  Age: 17 Year
  Sex: Female
  Weight: 44.9 kg

DRUGS (3)
  1. INCRELEX [Suspect]
     Indication: BODY HEIGHT BELOW NORMAL
     Dosage: 6 UT, BID, SUBCUTANEOUS ;3 UNITS, BID, SUBCUTANEOUS
     Route: 058
     Dates: start: 20071101, end: 20071201
  2. INCRELEX [Suspect]
     Indication: BODY HEIGHT BELOW NORMAL
     Dosage: 6 UT, BID, SUBCUTANEOUS ;3 UNITS, BID, SUBCUTANEOUS
     Route: 058
     Dates: start: 20071201
  3. LUPRON [Concomitant]

REACTIONS (5)
  - ARTHRALGIA [None]
  - FATIGUE [None]
  - HEADACHE [None]
  - HEPATIC ENZYME INCREASED [None]
  - INJECTION SITE ERYTHEMA [None]
